FAERS Safety Report 9734815 (Version 1)
Quarter: 2013Q4

REPORT INFORMATION
  Report Type: Spontaneous
  Country: IT (occurrence: IT)
  Receive Date: 20131206
  Receipt Date: 20131206
  Transmission Date: 20140711
  Serious: Yes (Hospitalization)
  Sender: FDA-Public Use
  Company Number: IT-JNJFOC-20131118490

PATIENT
  Age: 41 Year
  Sex: Male

DRUGS (6)
  1. REMICADE [Suspect]
     Indication: PSORIASIS
     Route: 042
     Dates: start: 20121011, end: 20130829
  2. TRIATEC [Concomitant]
     Route: 048
  3. LANSOX [Concomitant]
     Route: 048
  4. NORVASC [Concomitant]
     Route: 048
  5. OLPRESS [Concomitant]
     Route: 048
  6. CARDIOASPIRIN [Concomitant]
     Route: 048

REACTIONS (7)
  - Arthralgia [Recovering/Resolving]
  - Asthenia [Recovering/Resolving]
  - Chest pain [Recovering/Resolving]
  - Dyspnoea [Recovering/Resolving]
  - Pyrexia [Recovering/Resolving]
  - Cough [Recovering/Resolving]
  - Night sweats [Unknown]
